FAERS Safety Report 7503661-3 (Version None)
Quarter: 2011Q2

REPORT INFORMATION
  Report Type: 
  Country: None (occurrence: None)
  Receive Date: 20110525
  Receipt Date: 20110519
  Transmission Date: 20111010
  Serious: Yes (Other)
  Sender: FDA-Public Use
  Company Number: BR-US-EMD SERONO, INC.-7060813

PATIENT
  Sex: Male

DRUGS (3)
  1. AMITRIPTYLINE HCL [Concomitant]
  2. CLONAZEPAM [Concomitant]
  3. REBIF [Suspect]
     Indication: PRIMARY PROGRESSIVE MULTIPLE SCLEROSIS
     Dates: start: 20091001

REACTIONS (9)
  - SUICIDE ATTEMPT [None]
  - FALL [None]
  - INJECTION SITE PAIN [None]
  - PAINFUL RESPIRATION [None]
  - BACK PAIN [None]
  - PAIN [None]
  - DRY MOUTH [None]
  - HYPERAESTHESIA [None]
  - OFF LABEL USE [None]
